FAERS Safety Report 21341957 (Version 1)
Quarter: 2022Q3

REPORT INFORMATION
  Report Type: Spontaneous
  Country: TH (occurrence: TH)
  Receive Date: 20220916
  Receipt Date: 20220916
  Transmission Date: 20221027
  Serious: Yes (Hospitalization, Other)
  Sender: FDA-Public Use
  Company Number: TH-AMGEN-THASP2022158226

PATIENT
  Age: 47 Year
  Sex: Female

DRUGS (5)
  1. BEVACIZUMAB [Suspect]
     Active Substance: BEVACIZUMAB
     Indication: Scleritis
  2. GANCICLOVIR [Concomitant]
     Active Substance: GANCICLOVIR
     Indication: Scleritis
     Route: 026
  3. GANCICLOVIR [Concomitant]
     Active Substance: GANCICLOVIR
     Dosage: UNK
  4. MOXIFLOXACIN [Concomitant]
     Active Substance: MOXIFLOXACIN
     Indication: Scleritis
  5. PREDNISOLONE ACETATE [Concomitant]
     Active Substance: PREDNISOLONE ACETATE
     Indication: Scleritis

REACTIONS (5)
  - Scleritis [Recovered/Resolved]
  - Fungal infection [Unknown]
  - Epstein-Barr virus infection [Unknown]
  - Drug effective for unapproved indication [Unknown]
  - Off label use [Unknown]
